FAERS Safety Report 15298061 (Version 1)
Quarter: 2018Q3

REPORT INFORMATION
  Report Type: Spontaneous
  Country: JP (occurrence: JP)
  Receive Date: 20180820
  Receipt Date: 20180820
  Transmission Date: 20181010
  Serious: Yes (Other)
  Sender: FDA-Public Use
  Company Number: JP-CORDEN PHARMA LATINA S.P.A.-JP-2018COR000083

PATIENT

DRUGS (3)
  1. MELPHALAN. [Suspect]
     Active Substance: MELPHALAN
     Indication: GERM CELL CANCER
     Dosage: 70 MG/M2, QD FROM DAY ?4 TO ?3
     Route: 065
  2. CARBOPLATIN. [Suspect]
     Active Substance: CARBOPLATIN
     Indication: GERM CELL CANCER
     Dosage: 400 MG/M2, QD, 1 CYCLE FROM DAY?8 TO ?6
     Route: 065
  3. ETOPOSIDE. [Suspect]
     Active Substance: ETOPOSIDE
     Indication: GERM CELL CANCER
     Dosage: 200 MG/M2, QD, 1 CYCLE, FROM DAY?8 TO ?5
     Route: 065

REACTIONS (1)
  - Hypokalaemia [Recovered/Resolved]
